FAERS Safety Report 4723175-3 (Version None)
Quarter: 2005Q3

REPORT INFORMATION
  Report Type: 
  Country: None (occurrence: None)
  Receive Date: 20050719
  Receipt Date: 20040909
  Transmission Date: 20060218
  Serious: Yes (Hospitalization)
  Sender: FDA-Public Use
  Company Number: 2004229759US

PATIENT
  Sex: Male
  Weight: 79.4 kg

DRUGS (5)
  1. CELEBREX [Suspect]
     Indication: ARTHRITIS
     Dosage: UNK, UNK, ORAL
     Route: 048
  2. MEVACOR [Concomitant]
  3. PRINIVIL [Concomitant]
  4. INDAPAMIDE [Concomitant]
  5. LANOXIN [Concomitant]

REACTIONS (2)
  - MYOCARDIAL INFARCTION [None]
  - RECTAL HAEMORRHAGE [None]
